FAERS Safety Report 11721706 (Version 2)
Quarter: 2016Q1

REPORT INFORMATION
  Report Type: Report from Study
  Country: US (occurrence: US)
  Receive Date: 20151111
  Receipt Date: 20160112
  Transmission Date: 20160525
  Serious: Yes (Hospitalization, Other)
  Sender: FDA-Public Use
  Company Number: US-AMGEN-USASL2015118057

PATIENT
  Age: 70 Year
  Sex: Female

DRUGS (1)
  1. ENBREL [Suspect]
     Active Substance: ETANERCEPT
     Indication: RHEUMATOID ARTHRITIS
     Dosage: 50 MG, QWK
     Route: 065
     Dates: start: 20151015

REACTIONS (5)
  - Fall [Unknown]
  - Rhabdomyolysis [Unknown]
  - Erythema [Unknown]
  - Skin abrasion [Unknown]
  - Laceration [Unknown]

NARRATIVE: CASE EVENT DATE: 2015
